FAERS Safety Report 14082044 (Version 1)
Quarter: 2017Q4

REPORT INFORMATION
  Report Type: Spontaneous
  Country: US (occurrence: US)
  Receive Date: 20171012
  Receipt Date: 20171012
  Transmission Date: 20180321
  Serious: No
  Sender: FDA-Public Use
  Company Number: US-MYLANLABS-2017M1047612

PATIENT
  Sex: Female
  Weight: 46 kg

DRUGS (4)
  1. CLONAZEPAM TABLETS, USP [Suspect]
     Active Substance: CLONAZEPAM
     Indication: ANXIETY
     Dosage: 0.5 DF, BID (0.5 TAB QAM AND 0.5 TAB QHS)
  2. TRILEPTAL [Concomitant]
     Active Substance: OXCARBAZEPINE
     Indication: AFFECTIVE DISORDER
     Dosage: 300 MG, BID
  3. SEROQUEL [Concomitant]
     Active Substance: QUETIAPINE FUMARATE
     Indication: PSYCHOTIC DISORDER
     Dosage: 25 MG, HS (0.5 TAB QHS)
  4. SONATA [Concomitant]
     Active Substance: ZALEPLON
     Indication: SLEEP DISORDER
     Dosage: 10 MG, HS

REACTIONS (1)
  - Amnesia [Not Recovered/Not Resolved]
